FAERS Safety Report 23145679 (Version 2)
Quarter: 2023Q4

REPORT INFORMATION
  Report Type: Spontaneous
  Country: US (occurrence: US)
  Receive Date: 20231103
  Receipt Date: 20231213
  Transmission Date: 20240109
  Serious: No
  Sender: FDA-Public Use
  Company Number: US-INSUD PHARMA-2310US07367

PATIENT

DRUGS (1)
  1. TYBLUME [Suspect]
     Active Substance: ETHINYL ESTRADIOL\LEVONORGESTREL
     Indication: Oral contraception
     Dosage: UNK
     Route: 048
     Dates: start: 20231019

REACTIONS (1)
  - Miliaria [Recovered/Resolved]

NARRATIVE: CASE EVENT DATE: 20231022
